FAERS Safety Report 5528982-5 (Version None)
Quarter: 2007Q4

REPORT INFORMATION
  Report Type: 
  Country: None (occurrence: None)
  Receive Date: 20071129
  Receipt Date: 20071126
  Transmission Date: 20080405
  Serious: Yes (Life-Threatening, Hospitalization)
  Sender: FDA-Public Use
  Company Number: GR-GENENTECH-251787

PATIENT
  Age: 42 Year
  Sex: Female

DRUGS (4)
  1. RAPTIVA [Suspect]
     Indication: PSORIASIS
     Dosage: UNK, 1/WEEK
     Dates: start: 20060501, end: 20071001
  2. PENICILLIN G [Suspect]
     Indication: EAR INFECTION
     Dates: start: 20071001
  3. CLINDAMYCIN HCL [Suspect]
     Indication: EAR INFECTION
     Dates: start: 20071001
  4. CEFAMANDOLE [Suspect]
     Indication: EAR INFECTION
     Dates: start: 20071001

REACTIONS (3)
  - ANAEMIA MEGALOBLASTIC [None]
  - FATIGUE [None]
  - PANCYTOPENIA [None]
